FAERS Safety Report 7151053 (Version 6)
Quarter: 2013Q4

REPORT INFORMATION
  Report Type: Spontaneous
  Country: US (occurrence: US)
  Receive Date: 20091016
  Receipt Date: 20131202
  Transmission Date: 20140711
  Serious: Yes (Hospitalization)
  Sender: FDA-Public Use
  Company Number: US-BAYER-200935665NA

PATIENT
  Age: 23 Year
  Sex: Female
  Weight: 88.44 kg

DRUGS (4)
  1. YASMIN [Suspect]
     Indication: PRODUCT USED FOR UNKNOWN INDICATION
     Dosage: SAMPLES RECEIVED IN MAY 2003
     Dates: start: 200501, end: 200512
  2. YASMIN [Suspect]
     Indication: PRODUCT USED FOR UNKNOWN INDICATION
     Route: 048
  3. PRENATAL 1+1 W/IRON [Concomitant]
  4. BRETHINE [Concomitant]

REACTIONS (3)
  - Gallbladder injury [Unknown]
  - Cholecystitis chronic [None]
  - Cholelithiasis [None]
